FAERS Safety Report 6765782-2 (Version None)
Quarter: 2010Q2

REPORT INFORMATION
  Report Type: 
  Country: None (occurrence: None)
  Receive Date: 20100611
  Receipt Date: 20100607
  Transmission Date: 20101027
  Serious: Yes (Hospitalization)
  Sender: FDA-Public Use
  Company Number: US-SANOFI-AVENTIS-2010SA032846

PATIENT
  Sex: Female

DRUGS (1)
  1. LANTUS [Suspect]
     Route: 051

REACTIONS (1)
  - HOSPITALISATION [None]
